FAERS Safety Report 20811682 (Version 2)
Quarter: 2022Q3

REPORT INFORMATION
  Report Type: Other
  Country: ES (occurrence: ES)
  Receive Date: 20220510
  Receipt Date: 20220721
  Transmission Date: 20221027
  Serious: Yes (Other)
  Sender: FDA-Public Use
  Company Number: ES-Blueprint Medicines Corporation-LT-ES-2022-001343

PATIENT
  Age: 69 Year
  Sex: Male

DRUGS (2)
  1. AVAPRITINIB [Suspect]
     Active Substance: AVAPRITINIB
     Indication: Gastrointestinal stromal tumour
     Route: 048
  2. AVAPRITINIB [Suspect]
     Active Substance: AVAPRITINIB
     Route: 048

REACTIONS (5)
  - Periorbital oedema [Recovering/Resolving]
  - Eyelid oedema [Recovering/Resolving]
  - Lacrimation increased [Recovering/Resolving]
  - Conjunctival oedema [Recovering/Resolving]
  - Hair colour changes [Recovering/Resolving]
